FAERS Safety Report 18696139 (Version 1)
Quarter: 2021Q1

REPORT INFORMATION
  Report Type: Report from Study
  Country: US (occurrence: US)
  Receive Date: 20210104
  Receipt Date: 20210104
  Transmission Date: 20210419
  Serious: No
  Sender: FDA-Public Use
  Company Number: US-AGIOS-2012US02361

PATIENT

DRUGS (12)
  1. AZACITIDINE. [Concomitant]
     Active Substance: AZACITIDINE
  2. FLUCONAZOLE. [Concomitant]
     Active Substance: FLUCONAZOLE
  3. NAMENDA [Concomitant]
     Active Substance: MEMANTINE HYDROCHLORIDE
  4. VENETOCLAX. [Concomitant]
     Active Substance: VENETOCLAX
  5. TIBSOVO [Suspect]
     Active Substance: IVOSIDENIB
     Indication: PANCYTOPENIA
  6. DOCUSATE [Concomitant]
     Active Substance: DOCUSATE
  7. PROTONIX                           /00661201/ [Concomitant]
     Active Substance: OMEPRAZOLE
  8. MIRALAX [Concomitant]
     Active Substance: POLYETHYLENE GLYCOL 3350
  9. TIBSOVO [Suspect]
     Active Substance: IVOSIDENIB
     Indication: ACUTE LEUKAEMIA
     Dosage: 500 MILLIGRAM (TWO 250MG TABLETS), QD
     Route: 048
     Dates: start: 20201029
  10. CIPRO [Concomitant]
     Active Substance: CIPROFLOXACIN HYDROCHLORIDE
  11. METOPROLOL. [Concomitant]
     Active Substance: METOPROLOL
  12. ACYCLOVIR                          /00587301/ [Concomitant]
     Active Substance: ACYCLOVIR

REACTIONS (2)
  - Incorrect dose administered [Unknown]
  - Off label use [Unknown]

NARRATIVE: CASE EVENT DATE: 20201029
